FAERS Safety Report 4924739-4 (Version None)
Quarter: 2006Q1

REPORT INFORMATION
  Report Type: 
  Country: None (occurrence: None)
  Receive Date: 20060227
  Receipt Date: 20050502
  Transmission Date: 20060701
  Serious: Yes (Hospitalization, Disabling)
  Sender: FDA-Public Use
  Company Number: US-MERCK-0505USA00374

PATIENT
  Age: 50 Year
  Sex: Male
  Weight: 108 kg

DRUGS (5)
  1. VIOXX [Suspect]
     Indication: ARTHRALGIA
     Route: 048
     Dates: start: 20000503, end: 20020522
  2. VIOXX [Suspect]
     Route: 048
     Dates: start: 20000503, end: 20020522
  3. VIOXX [Suspect]
     Indication: SHOULDER PAIN
     Route: 048
     Dates: start: 20000503, end: 20020522
  4. VIOXX [Suspect]
     Route: 048
     Dates: start: 20000503, end: 20020522
  5. ASPIRIN [Concomitant]
     Indication: PHARYNGOLARYNGEAL PAIN
     Route: 065

REACTIONS (15)
  - BACK INJURY [None]
  - CEREBROVASCULAR ACCIDENT [None]
  - DEPRESSION [None]
  - DIARRHOEA [None]
  - EMOTIONAL DISORDER [None]
  - EXOSTOSIS [None]
  - FOLLICULITIS [None]
  - HEADACHE [None]
  - LUNG DISORDER [None]
  - OBESITY [None]
  - PERIARTHRITIS [None]
  - SCOLIOSIS [None]
  - SHOULDER PAIN [None]
  - TEMPOROMANDIBULAR JOINT SYNDROME [None]
  - TINEA INFECTION [None]
